FAERS Safety Report 18417427 (Version 2)
Quarter: 2021Q3

REPORT INFORMATION
  Report Type: Spontaneous
  Country: US (occurrence: US)
  Receive Date: 20201022
  Receipt Date: 20210722
  Transmission Date: 20211014
  Serious: No
  Sender: FDA-Public Use
  Company Number: 2020SGN02902

PATIENT
  Sex: Female

DRUGS (2)
  1. TUKYSA [Suspect]
     Active Substance: TUCATINIB
     Indication: BREAST CANCER
     Dosage: 150 MG, UNK
  2. XELODA [Suspect]
     Active Substance: CAPECITABINE
     Indication: BREAST CANCER

REACTIONS (6)
  - Fatigue [Unknown]
  - Decreased appetite [Unknown]
  - Diarrhoea [Recovering/Resolving]
  - Nausea [Unknown]
  - Vomiting [Unknown]
  - Drug intolerance [Unknown]
